FAERS Safety Report 7028109-7 (Version None)
Quarter: 2010Q3

REPORT INFORMATION
  Report Type: 
  Country: None (occurrence: None)
  Receive Date: 20100930
  Receipt Date: 20100916
  Transmission Date: 20110219
  Serious: Yes (Other)
  Sender: FDA-Public Use
  Company Number: US-1182863

PATIENT
  Age: 55 Year
  Sex: Female
  Weight: 63.5036 kg

DRUGS (4)
  1. SYSTANE EYE DROPS [Suspect]
     Indication: DRY EYE
     Dosage: 1-2 TIMES A DAY, AS NEEDED OPHTHALMIC
     Route: 047
     Dates: start: 20100618, end: 20100628
  2. OPTI TEARS EYE DROPS [Suspect]
     Indication: CONTACT LENS THERAPY
     Dosage: OPHTHALMIC
     Route: 047
     Dates: start: 20100628, end: 20100709
  3. OPTI TEARS EYE DROPS [Suspect]
     Indication: DRY EYE
     Dosage: OPHTHALMIC
     Route: 047
     Dates: start: 20100628, end: 20100709
  4. OPTI FREE ESTUCHE [Suspect]
     Indication: CONTACT LENS THERAPY
     Dosage: OTHER
     Route: 050
     Dates: start: 20100628, end: 20100709

REACTIONS (1)
  - UVEITIS [None]
